FAERS Safety Report 20518751 (Version 2)
Quarter: 2022Q1

REPORT INFORMATION
  Report Type: Spontaneous
  Country: JP (occurrence: JP)
  Receive Date: 20220225
  Receipt Date: 20220307
  Transmission Date: 20220424
  Serious: Yes (Hospitalization, Other)
  Sender: FDA-Public Use
  Company Number: JP-MACLEODS PHARMACEUTICALS US LTD-MAC2022034540

PATIENT

DRUGS (1)
  1. CLOPIDOGREL [Suspect]
     Active Substance: CLOPIDOGREL BISULFATE
     Indication: Myocardial infarction
     Dosage: UNK
     Route: 065

REACTIONS (10)
  - Hypercalcaemia [Recovering/Resolving]
  - Lymphadenopathy mediastinal [Recovering/Resolving]
  - Pleural effusion [Recovering/Resolving]
  - Lung infiltration [Recovering/Resolving]
  - Pulmonary mass [Recovering/Resolving]
  - Asthma [Recovered/Resolved]
  - Blister [Recovered/Resolved]
  - Blood alkaline phosphatase increased [Recovering/Resolving]
  - Erythema [Recovered/Resolved]
  - Eosinophilia [Recovering/Resolving]
